FAERS Safety Report 5291980-3 (Version None)
Quarter: 2007Q2

REPORT INFORMATION
  Report Type: 
  Country: None (occurrence: None)
  Receive Date: 20070410
  Receipt Date: 20070407
  Transmission Date: 20071010
  Serious: Yes (Other)
  Sender: FDA-Public Use
  Company Number: US-GENENTECH-235929

PATIENT

DRUGS (2)
  1. HERCEPTIN [Suspect]
     Indication: BREAST CANCER
     Dosage: UNK, Q3W
  2. CHEMOTHERAPY (UNK INGREDIENTS) [Concomitant]
     Indication: BREAST CANCER

REACTIONS (1)
  - HAEMORRHAGE [None]
